FAERS Safety Report 15851899 (Version 1)
Quarter: 2019Q1

REPORT INFORMATION
  Report Type: Spontaneous
  Country: US (occurrence: US)
  Receive Date: 20190122
  Receipt Date: 20190122
  Transmission Date: 20190417
  Serious: No
  Sender: FDA-Public Use
  Company Number: US-BAUSCH-BL-2017-028162

PATIENT
  Age: 84 Year
  Sex: Female
  Weight: 48.58 kg

DRUGS (2)
  1. ALAWAY [Suspect]
     Active Substance: KETOTIFEN FUMARATE
     Indication: DRY EYE
     Route: 047
     Dates: start: 201709, end: 201709
  2. PRESERVISION AREDS 2 FORMULA VITAMIN AND MINERAL SUPPLEMENT SOFT GELS [Concomitant]
     Indication: MACULAR DEGENERATION
     Dosage: STARTED A YEAR AND HALF AGO
     Dates: start: 2016

REACTIONS (1)
  - Eye irritation [Recovered/Resolved]

NARRATIVE: CASE EVENT DATE: 201709
